FAERS Safety Report 14647509 (Version 2)
Quarter: 2018Q1

REPORT INFORMATION
  Report Type: Spontaneous
  Country: MX (occurrence: MX)
  Receive Date: 20180316
  Receipt Date: 20180316
  Transmission Date: 20180509
  Serious: Yes (Other)
  Sender: FDA-Public Use
  Company Number: MX-ASCEND THERAPEUTICS-2043920

PATIENT
  Age: 51 Year
  Sex: Female

DRUGS (3)
  1. EUTIROX (LEVOTHYROXINE SODIUM) [Concomitant]
     Active Substance: LEVOTHYROXINE SODIUM
     Route: 065
  2. NOVOTIRAL (LEVOTHYROXINE SODIUM, LIOTHYRONINE SODIUM) [Concomitant]
     Route: 065
  3. ESTROGEL [Suspect]
     Active Substance: ESTRADIOL
     Indication: HORMONE REPLACEMENT THERAPY
     Route: 061
     Dates: start: 201802, end: 201803

REACTIONS (1)
  - Angioedema [Recovered/Resolved]
